FAERS Safety Report 8285964-0 (Version None)
Quarter: 2012Q2

REPORT INFORMATION
  Report Type: 
  Country: None (occurrence: None)
  Receive Date: 20120415
  Receipt Date: 20120402
  Transmission Date: 20120825
  Serious: Yes (Death, Hospitalization)
  Sender: FDA-Public Use
  Company Number: JP-BRISTOL-MYERS SQUIBB COMPANY-16494304

PATIENT
  Age: 64 Year
  Sex: Male

DRUGS (2)
  1. FLUOROURACIL [Suspect]
     Indication: OESOPHAGEAL CARCINOMA
     Dosage: 1300MG/BODY ON DYS 1-5,29-33
  2. CISPLATIN [Suspect]
     Indication: OESOPHAGEAL CARCINOMA
     Dosage: 130MG/BODY ON DYS 1-5,29-33

REACTIONS (5)
  - DECREASED APPETITE [None]
  - SKIN HYPERPIGMENTATION [None]
  - RADIATION PNEUMONITIS [None]
  - OESOPHAGITIS ULCERATIVE [None]
  - STOMATITIS [None]
